FAERS Safety Report 10076931 (Version 1)
Quarter: 2014Q2

REPORT INFORMATION
  Report Type: Spontaneous
  Country: US (occurrence: US)
  Receive Date: 20140414
  Receipt Date: 20140414
  Transmission Date: 20141212
  Serious: No
  Sender: FDA-Public Use
  Company Number: US-TEVA-473512USA

PATIENT
  Age: 57 Year
  Sex: Male
  Weight: 93.07 kg

DRUGS (10)
  1. FENTANYL [Suspect]
     Indication: BACK PAIN
     Route: 048
     Dates: start: 2000, end: 20140401
  2. OXYCONTIN [Concomitant]
  3. GLIMEPIRIDE [Concomitant]
  4. GLUCOPHAGE [Concomitant]
  5. FINASTERIDE [Concomitant]
  6. UROXATRAL [Concomitant]
  7. ASPIRIN [Concomitant]
  8. LYRICA [Concomitant]
  9. LUNESTA [Concomitant]
  10. VALIUM [Concomitant]

REACTIONS (3)
  - Pain [Not Recovered/Not Resolved]
  - Feeling abnormal [Not Recovered/Not Resolved]
  - Off label use [Unknown]
